FAERS Safety Report 8001577-X (Version None)
Quarter: 2011Q4

REPORT INFORMATION
  Report Type: 
  Country: None (occurrence: None)
  Receive Date: 20111222
  Receipt Date: 20111207
  Transmission Date: 20120403
  Serious: Yes (Other)
  Sender: FDA-Public Use
  Company Number: IT-ROCHE-1021078

PATIENT

DRUGS (3)
  1. MABTHERA [Suspect]
     Indication: MANTLE CELL LYMPHOMA
  2. BENDAMUSTINE [Suspect]
     Indication: MANTLE CELL LYMPHOMA
  3. CYTARABINE [Suspect]
     Indication: MANTLE CELL LYMPHOMA

REACTIONS (5)
  - FEBRILE NEUTROPENIA [None]
  - THROMBOCYTOPENIA [None]
  - PNEUMONITIS [None]
  - NEUTROPENIA [None]
  - GAMMA-GLUTAMYLTRANSFERASE INCREASED [None]
